FAERS Safety Report 10955478 (Version 2)
Quarter: 2015Q2

REPORT INFORMATION
  Report Type: Spontaneous
  Country: JP (occurrence: JP)
  Receive Date: 20150326
  Receipt Date: 20150421
  Transmission Date: 20150821
  Serious: Yes (Other)
  Sender: FDA-Public Use
  Company Number: JP-009507513-1503JPN008192

PATIENT
  Age: 78 Year
  Sex: Male

DRUGS (2)
  1. BLADDERON [Concomitant]
     Active Substance: FLAVOXATE
     Dosage: DAILY DOSE UNKNOWN
     Route: 048
     Dates: start: 201502, end: 2015
  2. BELSOMRA [Suspect]
     Active Substance: SUVOREXANT
     Indication: INSOMNIA
     Dosage: DAILY DOSE UNKNOWN
     Route: 048
     Dates: start: 201412, end: 201503

REACTIONS (1)
  - Hepatic function abnormal [Unknown]

NARRATIVE: CASE EVENT DATE: 20150306
